FAERS Safety Report 11841807 (Version 2)
Quarter: 2015Q4

REPORT INFORMATION
  Report Type: Spontaneous
  Country: ES (occurrence: ES)
  Receive Date: 20151216
  Receipt Date: 20151229
  Transmission Date: 20160305
  Serious: Yes (Other)
  Sender: FDA-Public Use
  Company Number: ES-PFIZER INC-2015441863

PATIENT
  Age: 2 Year
  Sex: Male

DRUGS (2)
  1. RIFABUTIN. [Interacting]
     Active Substance: RIFABUTIN
     Indication: ATYPICAL MYCOBACTERIAL LYMPHADENITIS
     Dosage: 5 MG/KG, DAILY
  2. AZITHROMYCIN [Suspect]
     Active Substance: AZITHROMYCIN ANHYDROUS
     Indication: ATYPICAL MYCOBACTERIAL LYMPHADENITIS
     Dosage: 10 MG/KG, DAILY
     Route: 048

REACTIONS (3)
  - Neutropenia [Recovered/Resolved]
  - Toxicity to various agents [Recovered/Resolved]
  - Drug interaction [Recovered/Resolved]
